FAERS Safety Report 15815188 (Version 3)
Quarter: 2019Q1

REPORT INFORMATION
  Report Type: Report from Study
  Country: IT (occurrence: IT)
  Receive Date: 20190112
  Receipt Date: 20190215
  Transmission Date: 20190417
  Serious: Yes (Hospitalization)
  Sender: FDA-Public Use
  Company Number: IT-ACCORD-101361

PATIENT
  Age: 45 Year
  Sex: Female
  Weight: 83 kg

DRUGS (6)
  1. GRANISETRON KABI [Concomitant]
     Active Substance: GRANISETRON
     Indication: VOMITING
     Route: 042
     Dates: start: 20180123, end: 20180123
  2. RANITIDINE. [Concomitant]
     Active Substance: RANITIDINE
     Indication: GASTRITIS
     Route: 042
     Dates: start: 20180123, end: 20180123
  3. TRIMETON [Concomitant]
     Active Substance: CHLORPHENIRAMINE MALEATE
     Indication: VOMITING
     Route: 042
     Dates: start: 20180123, end: 20180123
  4. DOCETAXEL?ACCORD [Suspect]
     Active Substance: DOCETAXEL
     Indication: CHEMOTHERAPY
     Route: 042
     Dates: start: 20180123, end: 20180123
  5. ENDOXAN BAXTER [Suspect]
     Active Substance: CYCLOPHOSPHAMIDE
     Indication: CHEMOTHERAPY
     Route: 042
     Dates: start: 20180123, end: 20180123
  6. SOLDESAM [Concomitant]
     Active Substance: DEXAMETHASONE
     Indication: ANTIINFLAMMATORY THERAPY
     Route: 042
     Dates: start: 20180123, end: 20180123

REACTIONS (4)
  - Agitation [Recovered/Resolved]
  - Crying [Recovered/Resolved]
  - Leukopenia [Recovered/Resolved]
  - Pain [Recovered/Resolved]

NARRATIVE: CASE EVENT DATE: 20180129
